FAERS Safety Report 10737755 (Version 1)
Quarter: 2015Q1

REPORT INFORMATION
  Report Type: Spontaneous
  Country: US (occurrence: None)
  Receive Date: 20150122
  Receipt Date: 20150122
  Transmission Date: 20150721
  Serious: Yes (Other)
  Sender: FDA-Public Use
  Company Number: 2015SA005809

PATIENT
  Sex: Male

DRUGS (1)
  1. SURFAK STOOL SOFTENER [Suspect]
     Active Substance: DOCUSATE CALCIUM

REACTIONS (1)
  - Drug dependence [None]
